FAERS Safety Report 8460154-7 (Version None)
Quarter: 2012Q2

REPORT INFORMATION
  Report Type: 
  Country: None (occurrence: None)
  Receive Date: 20120622
  Receipt Date: 20120611
  Transmission Date: 20120825
  Serious: Yes (Hospitalization)
  Sender: FDA-Public Use
  Company Number: IE-MEDIMMUNE-MEDI-0014846

PATIENT
  Age: 5 Month
  Sex: Male
  Weight: 8.4 kg

DRUGS (5)
  1. BECETIDE [Concomitant]
     Dosage: 50 TWICE DAILY
     Route: 055
  2. KAPSOVIT [Concomitant]
  3. SYNAGIS [Suspect]
     Indication: PREMATURE BABY
     Route: 030
     Dates: start: 20110922, end: 20110922
  4. FERROUS SULFATE TAB [Concomitant]
  5. SYNAGIS [Suspect]
     Route: 030
     Dates: start: 20120101, end: 20120101

REACTIONS (6)
  - COUGH [None]
  - BRONCHIOLITIS [None]
  - PYREXIA [None]
  - MALAISE [None]
  - DYSPNOEA [None]
  - RHINORRHOEA [None]
